FAERS Safety Report 8002923-3 (Version None)
Quarter: 2011Q4

REPORT INFORMATION
  Report Type: 
  Country: None (occurrence: None)
  Receive Date: 20111222
  Receipt Date: 20110328
  Transmission Date: 20120403
  Serious: No
  Sender: FDA-Public Use
  Company Number: US-GLAXOSMITHKLINE-A0920295A

PATIENT
  Age: 68 Year
  Sex: Male

DRUGS (5)
  1. PRAZOSIN HCL [Concomitant]
  2. LOVAZA [Concomitant]
  3. HYDROCHLOROTHIAZIDE [Concomitant]
  4. AVODART [Suspect]
     Indication: BENIGN PROSTATIC HYPERPLASIA
     Dosage: 1CAP PER DAY
     Route: 048
     Dates: start: 20080101
  5. VYTORIN [Concomitant]

REACTIONS (2)
  - PENILE SIZE REDUCED [None]
  - PENILE CURVATURE [None]
